FAERS Safety Report 4475522-8 (Version None)
Quarter: 2004Q4

REPORT INFORMATION
  Report Type: 
  Country: None (occurrence: None)
  Receive Date: 20041015
  Receipt Date: 20040702
  Transmission Date: 20050328
  Serious: Yes (Life-Threatening, Other)
  Sender: FDA-Public Use
  Company Number: JP-JNJFOC-20040606651

PATIENT
  Sex: Male

DRUGS (3)
  1. ITRIZOLE [Suspect]
     Indication: ONYCHOMYCOSIS
     Route: 049
  2. ALLOPURINOL [Concomitant]
     Indication: HYPERURICAEMIA
     Route: 049
  3. FURSULTIAMINE [Concomitant]
     Route: 049

REACTIONS (1)
  - THROMBOCYTOPENIA [None]
